FAERS Safety Report 17393923 (Version 1)
Quarter: 2020Q1

REPORT INFORMATION
  Report Type: Report from Study
  Country: None (occurrence: CA)
  Receive Date: 20200210
  Receipt Date: 20200210
  Transmission Date: 20200409
  Serious: Yes (Hospitalization, Other)
  Sender: FDA-Public Use
  Company Number: CA-ABBVIE-20K-028-3265614-00

PATIENT
  Sex: Female

DRUGS (3)
  1. MAGNESIUM [Suspect]
     Active Substance: MAGNESIUM
     Indication: RENAL IMPAIRMENT
     Route: 065
  2. HUMIRA [Suspect]
     Active Substance: ADALIMUMAB
     Indication: CROHN^S DISEASE
     Route: 058
     Dates: start: 20100310
  3. MAGNESIUM [Suspect]
     Active Substance: MAGNESIUM
     Indication: DEHYDRATION

REACTIONS (11)
  - Precancerous cells present [Not Recovered/Not Resolved]
  - Hip fracture [Unknown]
  - Anaemia [Unknown]
  - Cough [Not Recovered/Not Resolved]
  - Syncope [Recovered/Resolved]
  - Bronchitis [Unknown]
  - Renal impairment [Unknown]
  - Dehydration [Recovered/Resolved]
  - Fall [Unknown]
  - Femur fracture [Unknown]
  - Diarrhoea [Not Recovered/Not Resolved]

NARRATIVE: CASE EVENT DATE: 2018
